FAERS Safety Report 26048306 (Version 1)
Quarter: 2025Q4

REPORT INFORMATION
  Report Type: Spontaneous
  Country: GB (occurrence: GB)
  Receive Date: 20251114
  Receipt Date: 20251114
  Transmission Date: 20260119
  Serious: Yes (Life-Threatening, Other)
  Sender: PFIZER
  Company Number: GB-PFIZER INC-PV202500132455

PATIENT
  Age: 21 Year
  Sex: Female

DRUGS (4)
  1. METRONIDAZOLE [Suspect]
     Active Substance: METRONIDAZOLE
     Indication: Streptococcal infection
     Dosage: 400 MG, 3X/DAY
  2. METRONIDAZOLE [Suspect]
     Active Substance: METRONIDAZOLE
     Indication: Diarrhoea haemorrhagic
     Dosage: UNK
     Route: 042
  3. CEFUROXIME [Suspect]
     Active Substance: CEFUROXIME
     Indication: Diarrhoea haemorrhagic
     Dosage: UNK
  4. AMPICILLIN [Suspect]
     Active Substance: AMPICILLIN
     Indication: Streptococcal infection
     Dosage: 500 MG, 4X/DAY

REACTIONS (1)
  - Haemolytic uraemic syndrome [Recovered/Resolved]
